FAERS Safety Report 13422150 (Version 1)
Quarter: 2017Q2

REPORT INFORMATION
  Report Type: Spontaneous
  Country: SE (occurrence: SE)
  Receive Date: 20170410
  Receipt Date: 20170410
  Transmission Date: 20170830
  Serious: Yes (Other)
  Sender: FDA-Public Use
  Company Number: SE-ORION CORPORATION ORION PHARMA-SPIR2017-0011

PATIENT
  Age: 73 Year
  Sex: Female

DRUGS (12)
  1. PAPAVERINE [Suspect]
     Active Substance: PAPAVERINE
     Route: 065
  2. SPIRONOLACTONE (TRADE NAME UNKNOWN) [Suspect]
     Active Substance: SPIRONOLACTONE
     Dosage: STRENGTH: 25 MG
     Route: 065
  3. ENALAPRIL (TRADE NAME UNKNOWN) [Suspect]
     Active Substance: ENALAPRIL
     Route: 065
  4. LOSARTAN. [Suspect]
     Active Substance: LOSARTAN
     Route: 065
  5. FLUCONAZOLE. [Suspect]
     Active Substance: FLUCONAZOLE
     Route: 065
  6. CANDESARTAN (TRADE NAME UNKNOWN) [Suspect]
     Active Substance: CANDESARTAN
     Route: 065
  7. DICLOFENAC [Suspect]
     Active Substance: DICLOFENAC
     Route: 065
  8. NAPROXEN (TRADE NAME UNKNOWN) [Suspect]
     Active Substance: NAPROXEN
     Route: 065
  9. VOLTAREN [Suspect]
     Active Substance: DICLOFENAC SODIUM
     Route: 065
  10. NORMORIX MITE [Suspect]
     Active Substance: AMILORIDE HYDROCHLORIDE\HYDROCHLOROTHIAZIDE
     Route: 065
  11. TELMISARTAN. [Suspect]
     Active Substance: TELMISARTAN
     Route: 065
  12. IPREN [Suspect]
     Active Substance: IBUPROFEN
     Route: 065

REACTIONS (5)
  - Nausea [Not Recovered/Not Resolved]
  - Feeling abnormal [Not Recovered/Not Resolved]
  - Headache [Not Recovered/Not Resolved]
  - Influenza like illness [Not Recovered/Not Resolved]
  - Arthralgia [Not Recovered/Not Resolved]
